FAERS Safety Report 8157096-3 (Version None)
Quarter: 2012Q1

REPORT INFORMATION
  Report Type: 
  Country: None (occurrence: None)
  Receive Date: 20120222
  Receipt Date: 20120216
  Transmission Date: 20120608
  Serious: Yes (Hospitalization)
  Sender: FDA-Public Use
  Company Number: DE-ABBOTT-12P-062-0906171-00

PATIENT
  Sex: Male

DRUGS (1)
  1. ENANTONE 3.75 MG [Suspect]
     Indication: PROSTATE CANCER METASTATIC
     Route: 058

REACTIONS (1)
  - CEREBROVASCULAR ACCIDENT [None]
